FAERS Safety Report 4576371-2 (Version None)
Quarter: 2005Q1

REPORT INFORMATION
  Report Type: 
  Country: None (occurrence: None)
  Receive Date: 20050207
  Receipt Date: 20050201
  Transmission Date: 20050727
  Serious: Yes (Other)
  Sender: FDA-Public Use
  Company Number: 2005022369

PATIENT
  Age: 55 Year
  Sex: Male

DRUGS (3)
  1. LIPITOR [Suspect]
     Indication: HYPERCHOLESTEROLAEMIA
     Dosage: 10 MG 910 MG, 1 IN 1 D), ORAL
     Route: 048
  2. ETHANOL (ETHANOL) [Suspect]
     Indication: ILL-DEFINED DISORDER
  3. ALL OTHER THERAPEUTIC PRODUCTS (ALL OTHER THERAPEUTIC PRODUCTS) [Suspect]
     Indication: ILL-DEFINED DISORDER
     Dosage: 12.5 MG (1 IN 1 D), ORAL
     Route: 048

REACTIONS (3)
  - DRUG INTERACTION [None]
  - LOSS OF CONSCIOUSNESS [None]
  - ROAD TRAFFIC ACCIDENT [None]
